FAERS Safety Report 9090228 (Version 1)
Quarter: 2013Q1

REPORT INFORMATION
  Report Type: Report from Study
  Country: US (occurrence: US)
  Receive Date: 20130218
  Receipt Date: 20130218
  Transmission Date: 20140127
  Serious: No
  Sender: FDA-Public Use
  Company Number: US-ABBOTT-12P-163-0908695-00

PATIENT
  Sex: Male

DRUGS (3)
  1. SIMCOR 1000MG/20MG [Suspect]
     Indication: BLOOD CHOLESTEROL
     Dosage: 1000/20
     Dates: start: 2010
  2. TYROXINE [Concomitant]
     Indication: PRODUCT USED FOR UNKNOWN INDICATION
  3. ALLOPURINOL [Concomitant]
     Indication: GOUT

REACTIONS (1)
  - Flushing [Unknown]
